FAERS Safety Report 17830073 (Version 3)
Quarter: 2020Q2

REPORT INFORMATION
  Report Type: Spontaneous
  Country: FR (occurrence: FR)
  Receive Date: 20200527
  Receipt Date: 20200624
  Transmission Date: 20200714
  Serious: Yes (Hospitalization, Other)
  Sender: FDA-Public Use
  Company Number: FR-JAZZ-2020-FR-005544

PATIENT

DRUGS (24)
  1. FLUDARABINE [Suspect]
     Active Substance: FLUDARABINE PHOSPHATE
     Indication: ACUTE MYELOID LEUKAEMIA REFRACTORY
     Dosage: 30 MILLIGRAM/SQ. METER
     Route: 065
  2. ONDANSETRON [Concomitant]
     Active Substance: ONDANSETRON
     Indication: STEM CELL TRANSPLANT
     Dosage: 8 MG/DOSE, 2/J
     Route: 042
     Dates: start: 20141110
  3. CANCIDAS [Concomitant]
     Active Substance: CASPOFUNGIN ACETATE
     Indication: STEM CELL TRANSPLANT
     Dosage: 70 MG/J, 1/J
     Route: 042
     Dates: start: 20141125
  4. CICLOSPORIN [Concomitant]
     Active Substance: CYCLOSPORINE
     Indication: STEM CELL TRANSPLANT
     Dosage: 60 MG/12H, 2/J
     Route: 042
     Dates: start: 20141110
  5. HYDROCORTISONE. [Suspect]
     Active Substance: HYDROCORTISONE
     Indication: ACUTE MYELOID LEUKAEMIA
     Dosage: UNKNOWN DOSE
     Route: 037
  6. URSODESOXYCHOLIC ACID [Concomitant]
     Active Substance: URSODIOL
     Indication: PROPHYLAXIS
  7. CYTARABINE. [Suspect]
     Active Substance: CYTARABINE
     Dosage: UNKNOWN DOSE
     Route: 037
  8. GEMTUZUMAB OZOGAMICIN [Suspect]
     Active Substance: GEMTUZUMAB OZOGAMICIN
     Indication: ACUTE MYELOID LEUKAEMIA REFRACTORY
     Dosage: 3 MILLIGRAM/SQ. METER, BID
     Route: 065
  9. AMSACRINE [Concomitant]
     Active Substance: AMSACRINE
     Indication: ACUTE MYELOID LEUKAEMIA
     Dosage: 100 MILLIGRAM/SQ. METER, QD
  10. RITUXIMAB. [Suspect]
     Active Substance: RITUXIMAB
     Indication: BONE MARROW CONDITIONING REGIMEN
     Dosage: UNKNOWN DOSE
  11. FLUCONAZOLE. [Concomitant]
     Active Substance: FLUCONAZOLE
     Indication: STEM CELL TRANSPLANT
     Dosage: 400MGJ, 1/J
     Route: 042
     Dates: start: 20141125
  12. CYTARABINE. [Suspect]
     Active Substance: CYTARABINE
     Indication: ACUTE MYELOID LEUKAEMIA
     Dosage: 2000 MILLIGRAM/SQ. METER
     Route: 065
  13. METHOTREXATE. [Suspect]
     Active Substance: METHOTREXATE
     Indication: ACUTE MYELOID LEUKAEMIA
     Dosage: UNKNOWN DOSE
     Route: 037
  14. MITOXANTRONE [Suspect]
     Active Substance: MITOXANTRONE HYDROCHLORIDE
     Indication: ACUTE MYELOID LEUKAEMIA
     Dosage: 12 MILLIGRAM/SQ. METER
     Route: 065
  15. DEXAMETHASONE. [Suspect]
     Active Substance: DEXAMETHASONE
     Indication: ACUTE MYELOID LEUKAEMIA
     Dosage: UNKNOWN DOSE
     Route: 037
  16. PANTOPRAZOLE [Concomitant]
     Active Substance: PANTOPRAZOLE
     Indication: STEM CELL TRANSPLANT
     Dosage: 40 MG/J, 1/J
     Route: 042
     Dates: start: 20141110
  17. DEFITELIO [Suspect]
     Active Substance: DEFIBROTIDE SODIUM
     Indication: PROPHYLAXIS
     Dosage: 6.25 MILLIGRAM/KILOGRAM (380 MILLIGRAM PER DOSE), QID
     Route: 042
     Dates: start: 20141111, end: 20141201
  18. CYTARABINE. [Suspect]
     Active Substance: CYTARABINE
     Dosage: 200 MILLIGRAM/SQ. METER, QD
     Route: 065
  19. CYTARABINE. [Suspect]
     Active Substance: CYTARABINE
     Dosage: 3 GRAM PER SQUARE METRE, BID
     Route: 065
  20. VALACICLOVIR [Concomitant]
     Active Substance: VALACYCLOVIR HYDROCHLORIDE
     Indication: STEM CELL TRANSPLANT
     Dosage: 500MG/DOSE, 2/J
     Route: 048
     Dates: start: 20141110
  21. CYCLOPHOSPHAMIDE. [Suspect]
     Active Substance: CYCLOPHOSPHAMIDE
     Indication: BONE MARROW CONDITIONING REGIMEN
  22. DELURSAN [Concomitant]
     Active Substance: URSODIOL
     Indication: STEM CELL TRANSPLANT
     Dosage: 250 MG/DOSE, 2/J
     Route: 048
     Dates: start: 20141110
  23. METHYLPREDNISOLONE. [Concomitant]
     Active Substance: METHYLPREDNISOLONE
     Indication: STEM CELL TRANSPLANT
     Dosage: 30 MG/12H, 2/J
     Route: 042
     Dates: start: 20141128
  24. CELLCEPT [Concomitant]
     Active Substance: MYCOPHENOLATE MOFETIL\MYCOPHENOLATE MOFETIL HYDROCHLORIDE
     Indication: STEM CELL TRANSPLANT
     Dosage: 1250 MG/12H, 2/J
     Route: 042
     Dates: start: 20141110

REACTIONS (10)
  - Febrile neutropenia [Unknown]
  - Myalgia [Unknown]
  - Thrombocytopenia [Unknown]
  - Hypersensitivity [Recovered/Resolved]
  - Granulicatella infection [Unknown]
  - Sepsis [Unknown]
  - Cerebral haemorrhage [Recovered/Resolved]
  - Drug resistance [Unknown]
  - Venoocclusive liver disease [Unknown]
  - Off label use [Unknown]

NARRATIVE: CASE EVENT DATE: 201411
